FAERS Safety Report 14918754 (Version 1)
Quarter: 2018Q2

REPORT INFORMATION
  Report Type: Spontaneous
  Country: US (occurrence: US)
  Receive Date: 20180521
  Receipt Date: 20180521
  Transmission Date: 20180711
  Serious: No
  Sender: FDA-Public Use
  Company Number: US-PFIZER INC-2018204987

PATIENT

DRUGS (1)
  1. JUNIOR STRENGTH ADVIL [Suspect]
     Active Substance: IBUPROFEN

REACTIONS (3)
  - Oral discomfort [Unknown]
  - Hypoaesthesia oral [Unknown]
  - Intentional product misuse [Unknown]
